FAERS Safety Report 17689305 (Version 1)
Quarter: 2020Q2

REPORT INFORMATION
  Report Type: Spontaneous
  Country: US (occurrence: US)
  Receive Date: 20200420
  Receipt Date: 20200420
  Transmission Date: 20200714
  Serious: Yes (Other)
  Sender: FDA-Public Use
  Company Number: None

PATIENT
  Age: 80 Year
  Sex: Male
  Weight: 75.7 kg

DRUGS (3)
  1. AZITHROMYCIN ANHYDROUS. [Suspect]
     Active Substance: AZITHROMYCIN ANHYDROUS
     Indication: SEVERE ACUTE RESPIRATORY SYNDROME
     Route: 042
     Dates: start: 20200401, end: 20200403
  2. HYDROXYCHLOROQUINE 200 MG [Concomitant]
     Active Substance: HYDROXYCHLOROQUINE
     Dates: start: 20200402, end: 20200405
  3. HYDROXYCHLOROQUINE 400 MG [Concomitant]
     Active Substance: HYDROXYCHLOROQUINE
     Dates: start: 20200401, end: 20200401

REACTIONS (2)
  - Therapy cessation [None]
  - Electrocardiogram QT prolonged [None]

NARRATIVE: CASE EVENT DATE: 20200403
